FAERS Safety Report 5786307-4 (Version None)
Quarter: 2008Q2

REPORT INFORMATION
  Report Type: 
  Country: None (occurrence: None)
  Receive Date: 20080624
  Receipt Date: 20070803
  Transmission Date: 20081010
  Serious: No
  Sender: FDA-Public Use
  Company Number: US-ASTRAZENECA-2007UW16655

PATIENT
  Age: 2 Year
  Sex: Male

DRUGS (4)
  1. PULMICORT RESPULES [Suspect]
     Indication: HYPERSENSITIVITY
     Route: 055
     Dates: start: 20070706, end: 20070716
  2. PULMICORT RESPULES [Suspect]
     Indication: ASTHMA
     Route: 055
     Dates: start: 20070706, end: 20070716
  3. ALCLOMETASONE [Concomitant]
  4. XOPENEX [Concomitant]
     Indication: ASTHMA
     Route: 055
     Dates: start: 20070706, end: 20070708

REACTIONS (4)
  - BLEPHAROSPASM [None]
  - EXCESSIVE EYE BLINKING [None]
  - EYE IRRITATION [None]
  - OCULAR HYPERAEMIA [None]
